FAERS Safety Report 7003318-1 (Version None)
Quarter: 2010Q3

REPORT INFORMATION
  Report Type: 
  Country: None (occurrence: None)
  Receive Date: 20100920
  Receipt Date: 20100706
  Transmission Date: 20110219
  Serious: No
  Sender: FDA-Public Use
  Company Number: A0868685A

PATIENT
  Age: 38 Year
  Sex: Female

DRUGS (5)
  1. LAMOTRIGINE [Suspect]
     Indication: PARTIAL SEIZURES
     Dosage: 100MG TWICE PER DAY
     Route: 048
     Dates: start: 20100607, end: 20100706
  2. CYMBALTA [Concomitant]
  3. DEMADEX [Concomitant]
  4. CLOBAZAM [Concomitant]
  5. TOPAMAX [Concomitant]

REACTIONS (2)
  - DIZZINESS [None]
  - DRUG INEFFECTIVE [None]
